FAERS Safety Report 15295293 (Version 1)
Quarter: 2018Q3

REPORT INFORMATION
  Report Type: Spontaneous
  Country: US (occurrence: US)
  Receive Date: 20180820
  Receipt Date: 20180820
  Transmission Date: 20181010
  Serious: Yes (Hospitalization, Other)
  Sender: FDA-Public Use
  Company Number: US-AUROBINDO-AUR-APL-2018-041918

PATIENT
  Age: 14 Year
  Sex: Male

DRUGS (1)
  1. MINOCYCLINE [Suspect]
     Active Substance: MINOCYCLINE\MINOCYCLINE HYDROCHLORIDE
     Indication: ACNE
     Dosage: 100 MILLIGRAM, TWO TIMES A DAY
     Route: 065

REACTIONS (16)
  - Rash [Unknown]
  - Skin ulcer [Unknown]
  - Corneal defect [Not Recovered/Not Resolved]
  - Oral pain [Unknown]
  - Tachycardia [Unknown]
  - Symblepharon [Unknown]
  - Delirium [Unknown]
  - Sinus tachycardia [Unknown]
  - Pyrexia [Unknown]
  - Rash erythematous [Unknown]
  - Stomatitis [Unknown]
  - Toxic epidermal necrolysis [Unknown]
  - Disease progression [Unknown]
  - Dermatitis bullous [Unknown]
  - Stevens-Johnson syndrome [Unknown]
  - Conjunctivitis [Unknown]
